FAERS Safety Report 16060939 (Version 1)
Quarter: 2019Q1

REPORT INFORMATION
  Report Type: Spontaneous
  Country: US (occurrence: US)
  Receive Date: 20190312
  Receipt Date: 20190312
  Transmission Date: 20190418
  Serious: Yes (Hospitalization)
  Sender: FDA-Public Use
  Company Number: US-ROCHE-2190292

PATIENT
  Sex: Female

DRUGS (3)
  1. KADCYLA [Suspect]
     Active Substance: ADO-TRASTUZUMAB EMTANSINE
     Indication: BREAST CANCER
     Route: 065
     Dates: start: 20180904
  2. HERCEPTIN [Suspect]
     Active Substance: TRASTUZUMAB
     Indication: BREAST CANCER
     Route: 065
  3. SENOKOT [Concomitant]
     Active Substance: SENNOSIDES

REACTIONS (6)
  - Constipation [Not Recovered/Not Resolved]
  - Pain [Unknown]
  - Hepatomegaly [Unknown]
  - Weight decreased [Unknown]
  - Decreased appetite [Unknown]
  - Unevaluable event [Unknown]
